FAERS Safety Report 8116202-7 (Version None)
Quarter: 2012Q1

REPORT INFORMATION
  Report Type: 
  Country: None (occurrence: None)
  Receive Date: 20120206
  Receipt Date: 20120127
  Transmission Date: 20120608
  Serious: Yes (Other)
  Sender: FDA-Public Use
  Company Number: CA-MERCK-1111USA03469

PATIENT
  Sex: Male

DRUGS (5)
  1. MIRAPEX [Concomitant]
     Route: 065
  2. AMITRIPTYLINE HYDROCHLORIDE [Concomitant]
     Route: 065
  3. SINEMET [Suspect]
     Indication: PARKINSON'S DISEASE
     Dosage: NEW PESENTATION
     Route: 048
  4. APOMORPHINE HYDROCHLORIDE [Suspect]
     Indication: PARKINSON'S DISEASE
     Route: 065
  5. SINEMET [Suspect]
     Dosage: OLD PRESENTATION
     Route: 048
     Dates: start: 20111201

REACTIONS (5)
  - BLINDNESS UNILATERAL [None]
  - ADVERSE REACTION [None]
  - DRUG INEFFECTIVE [None]
  - DIZZINESS [None]
  - SALIVARY HYPERSECRETION [None]
